FAERS Safety Report 17193226 (Version 3)
Quarter: 2020Q1

REPORT INFORMATION
  Report Type: Report from Study
  Country: US (occurrence: US)
  Receive Date: 20191223
  Receipt Date: 20200326
  Transmission Date: 20200409
  Serious: Yes (Hospitalization)
  Sender: FDA-Public Use
  Company Number: US-ACTELION-A-US2016-133451

PATIENT
  Sex: Male
  Weight: 96.6 kg

DRUGS (7)
  1. VELETRI [Suspect]
     Active Substance: EPOPROSTENOL
     Dosage: 47 NG/KG, PER MIN
     Route: 042
     Dates: start: 20130501
  2. LETAIRIS [Concomitant]
     Active Substance: AMBRISENTAN
  3. VELETRI [Suspect]
     Active Substance: EPOPROSTENOL
     Indication: PULMONARY ARTERIAL HYPERTENSION
     Dosage: 51 NG/KG, PER MIN
     Route: 042
  4. RIOCIGUAT. [Concomitant]
     Active Substance: RIOCIGUAT
  5. SILDENAFIL. [Concomitant]
     Active Substance: SILDENAFIL
  6. VELETRI [Suspect]
     Active Substance: EPOPROSTENOL
     Dosage: 40 NG/KG, PER MIN
     Route: 042
     Dates: start: 20130501
  7. VELETRI [Suspect]
     Active Substance: EPOPROSTENOL
     Dosage: 49 NG/KG, PER MIN
     Route: 042

REACTIONS (25)
  - Oxygen consumption increased [Unknown]
  - Dizziness [Unknown]
  - Lung transplant [Unknown]
  - Pain in jaw [Not Recovered/Not Resolved]
  - Catheter site discharge [Unknown]
  - Pain in extremity [Unknown]
  - Musculoskeletal stiffness [Unknown]
  - Lung disorder [Unknown]
  - Vascular device infection [Unknown]
  - Pulmonary hypertension [Unknown]
  - Infection [Unknown]
  - Nausea [Not Recovered/Not Resolved]
  - Chest discomfort [Unknown]
  - Back pain [Unknown]
  - Catheter site related reaction [Unknown]
  - Dyspnoea exertional [Unknown]
  - Muscle tightness [Unknown]
  - Respiratory failure [Unknown]
  - Catheter site rash [Unknown]
  - Catheter site erythema [Unknown]
  - Septic shock [Unknown]
  - Musculoskeletal pain [Unknown]
  - Diarrhoea [Not Recovered/Not Resolved]
  - Catheter site infection [Unknown]
  - Headache [Unknown]
